FAERS Safety Report 9598733 (Version 1)
Quarter: 2013Q4

REPORT INFORMATION
  Report Type: Spontaneous
  Country: US (occurrence: US)
  Receive Date: 20131004
  Receipt Date: 20131004
  Transmission Date: 20140711
  Serious: No
  Sender: FDA-Public Use
  Company Number: US-AMGEN-USASP2013025485

PATIENT
  Age: 29 Year
  Sex: Female
  Weight: 104 kg

DRUGS (6)
  1. ENBREL [Suspect]
     Indication: PRODUCT USED FOR UNKNOWN INDICATION
     Dosage: 50 MG, QWK
     Route: 058
  2. METHOTREXATE [Concomitant]
     Dosage: 2.5 MG, UNK
     Route: 048
  3. HYDROXYCHLOROQUINE [Concomitant]
     Dosage: 200 MG, UNK
     Route: 048
  4. NOVOLOG [Concomitant]
     Dosage: 100 ML, UNK
     Route: 058
  5. LEVOXYL [Concomitant]
     Dosage: 100 MUG, UNK
     Route: 048
  6. ENALAPRIL [Concomitant]
     Dosage: 2.5 MG, UNK
     Route: 048

REACTIONS (2)
  - Local swelling [Unknown]
  - Joint swelling [Unknown]
